FAERS Safety Report 8005609-4 (Version None)
Quarter: 2011Q4

REPORT INFORMATION
  Report Type: 
  Country: None (occurrence: None)
  Receive Date: 20111223
  Receipt Date: 20111220
  Transmission Date: 20120403
  Serious: Yes (Hospitalization, Other)
  Sender: FDA-Public Use
  Company Number: US-ROXANE LABORATORIES, INC.-2011-RO-01843RO

PATIENT
  Sex: Male

DRUGS (11)
  1. FILGRASTIM [Concomitant]
     Indication: PROPHYLAXIS
     Dosage: 480 MCG
     Dates: start: 20111007
  2. NORTRIPTYLINE HCL [Concomitant]
     Indication: NEUROPATHY PERIPHERAL
     Dates: start: 20111116
  3. ACETAMINOPHEN [Concomitant]
     Indication: PROPHYLAXIS
     Dates: start: 20111012
  4. DEXAMETHASONE [Suspect]
     Indication: MULTIPLE MYELOMA
     Dosage: 40 MG
     Route: 048
     Dates: start: 20111011, end: 20111101
  5. ARRY-520 [Suspect]
     Route: 042
     Dates: start: 20111109
  6. DIPHENHYDRAMINE HCL [Concomitant]
     Indication: PROPHYLAXIS
     Dates: start: 20111012
  7. ARRY-520 [Suspect]
     Route: 042
     Dates: start: 20111020, end: 20111108
  8. TRAMADOL HCL [Concomitant]
     Indication: NEUROPATHY PERIPHERAL
     Dates: start: 20090327
  9. ACETAMINOPHEN [Concomitant]
     Indication: NEUROPATHY PERIPHERAL
     Dates: start: 20111019
  10. GABAPENTIN [Concomitant]
     Indication: NEUROPATHY PERIPHERAL
     Dates: start: 20090701
  11. ARRY-520 [Suspect]
     Indication: MULTIPLE MYELOMA
     Route: 042
     Dates: start: 20111010, end: 20111019

REACTIONS (4)
  - THROMBOCYTOPENIA [None]
  - HYPOTENSION [None]
  - BACTERIAL INFECTION [None]
  - FEBRILE NEUTROPENIA [None]
